FAERS Safety Report 4412765-3 (Version None)
Quarter: 2004Q3

REPORT INFORMATION
  Report Type: 
  Country: None (occurrence: None)
  Receive Date: 20040730
  Receipt Date: 20040730
  Transmission Date: 20050211
  Serious: Yes (Other)
  Sender: FDA-Public Use
  Company Number: None

PATIENT
  Age: 5 Year
  Sex: Female

DRUGS (1)
  1. DILANTIN [Suspect]
     Dosage: INJECTABLE

REACTIONS (4)
  - ANOXIC ENCEPHALOPATHY [None]
  - INJURY [None]
  - MEDICATION ERROR [None]
  - RESPIRATORY FAILURE [None]
